FAERS Safety Report 9472592 (Version 1)
Quarter: 2013Q3

REPORT INFORMATION
  Report Type: Spontaneous
  Country: CA (occurrence: CA)
  Receive Date: 20130823
  Receipt Date: 20130823
  Transmission Date: 20140515
  Serious: Yes (Life-Threatening)
  Sender: FDA-Public Use
  Company Number: CA-GE HEALTHCARE MEDICAL DIAGNOSTICS-OMPQ-PR-1308S-1030

PATIENT
  Age: 59 Year
  Sex: Female

DRUGS (2)
  1. OMNIPAQUE [Suspect]
     Indication: CYST
     Route: 042
     Dates: start: 20130819, end: 20130819
  2. OMNIPAQUE [Suspect]
     Indication: DIAGNOSTIC PROCEDURE

REACTIONS (3)
  - Aspiration [Recovered/Resolved]
  - Respiratory arrest [Recovered/Resolved]
  - Vomiting [Recovered/Resolved]
